FAERS Safety Report 10069918 (Version 2)
Quarter: 2014Q2

REPORT INFORMATION
  Report Type: Spontaneous
  Country: CA (occurrence: CA)
  Receive Date: 20140410
  Receipt Date: 20140421
  Transmission Date: 20141212
  Serious: No
  Sender: FDA-Public Use
  Company Number: CA-JNJFOC-20140402746

PATIENT
  Sex: Female

DRUGS (2)
  1. DURAGESIC MAT [Suspect]
     Indication: PRODUCT USED FOR UNKNOWN INDICATION
     Dosage: 100 UG/HR + 50 UG/HR
     Route: 062
  2. DURAGESIC MAT [Suspect]
     Indication: PRODUCT USED FOR UNKNOWN INDICATION
     Route: 062

REACTIONS (4)
  - Incorrect dose administered [Unknown]
  - Product adhesion issue [Not Recovered/Not Resolved]
  - Erythema [Unknown]
  - Pain [Unknown]
